FAERS Safety Report 19047388 (Version 5)
Quarter: 2025Q3

REPORT INFORMATION
  Report Type: Report from Study
  Country: CA (occurrence: CA)
  Receive Date: 20210323
  Receipt Date: 20250708
  Transmission Date: 20251020
  Serious: Yes (Other)
  Sender: TAKEDA
  Company Number: CA-TAKEDA-2020TUS045731

PATIENT
  Age: 58 Year
  Sex: Male

DRUGS (8)
  1. ICATIBANT [Suspect]
     Active Substance: ICATIBANT ACETATE
     Indication: Hereditary angioedema
  2. ICATIBANT [Suspect]
     Active Substance: ICATIBANT ACETATE
     Indication: Hereditary angioedema with C1 esterase inhibitor deficiency
  3. ICATIBANT [Suspect]
     Active Substance: ICATIBANT ACETATE
  4. ICATIBANT [Suspect]
     Active Substance: ICATIBANT ACETATE
  5. ICATIBANT [Suspect]
     Active Substance: ICATIBANT ACETATE
  6. TAKHZYRO [Suspect]
     Active Substance: LANADELUMAB-FLYO
     Indication: Hereditary angioedema with C1 esterase inhibitor deficiency
     Dosage: UNK UNK, Q4WEEKS
     Dates: start: 20230824
  7. TAKHZYRO [Suspect]
     Active Substance: LANADELUMAB-FLYO
     Indication: Acquired C1 inhibitor deficiency
  8. RITUXIMAB [Concomitant]
     Active Substance: RITUXIMAB
     Indication: Blood disorder

REACTIONS (10)
  - Inguinal hernia [Unknown]
  - Blood disorder [Not Recovered/Not Resolved]
  - Hereditary angioedema [Recovered/Resolved]
  - Swollen tongue [Recovered/Resolved]
  - Fatigue [Not Recovered/Not Resolved]
  - Expired product administered [Recovered/Resolved]
  - Inappropriate schedule of product administration [Unknown]
  - Injection site mass [Recovered/Resolved]
  - Tongue pruritus [Recovered/Resolved]
  - Pruritus [Recovered/Resolved]

NARRATIVE: CASE EVENT DATE: 20201022
